FAERS Safety Report 5232326-6 (Version None)
Quarter: 2007Q1

REPORT INFORMATION
  Report Type: 
  Country: None (occurrence: None)
  Receive Date: 20070207
  Receipt Date: 20070125
  Transmission Date: 20070707
  Serious: No
  Sender: FDA-Public Use
  Company Number: US-JNJFOC-20060601794

PATIENT
  Sex: Female
  Weight: 66.68 kg

DRUGS (4)
  1. ORTHO EVRA [Suspect]
     Route: 062
  2. ORTHO EVRA [Suspect]
     Indication: MENSTRUATION IRREGULAR
     Route: 062
  3. FIORINAL [Suspect]
     Indication: UNEVALUABLE EVENT
  4. SYNAREL [Suspect]
     Indication: UNEVALUABLE EVENT

REACTIONS (3)
  - INAPPROPRIATE SCHEDULE OF DRUG ADMINISTRATION [None]
  - METRORRHAGIA [None]
  - RASH PRURITIC [None]
